FAERS Safety Report 10400312 (Version 2)
Quarter: 2014Q3

REPORT INFORMATION
  Report Type: Spontaneous
  Country: BR (occurrence: BR)
  Receive Date: 20140821
  Receipt Date: 20140821
  Transmission Date: 20150326
  Serious: Yes (Other)
  Sender: FDA-Public Use
  Company Number: BR-SA-2013SA101869

PATIENT
  Age: 37 Year
  Sex: Female
  Weight: 80 kg

DRUGS (8)
  1. ESTRADIOL VALERATE. [Concomitant]
     Active Substance: ESTRADIOL VALERATE
     Indication: PREGNANCY
     Route: 048
     Dates: start: 201309
  2. DEPURA [Concomitant]
     Active Substance: CHOLECALCIFEROL
     Indication: VITAMIN SUPPLEMENTATION
     Dosage: DAY AT NIGHT
     Route: 048
     Dates: start: 201307
  3. FOLIC ACID. [Concomitant]
     Active Substance: FOLIC ACID
     Indication: PROPHYLAXIS
     Route: 048
     Dates: start: 2013
  4. AAS [Concomitant]
     Active Substance: ASPIRIN
     Indication: THROMBOSIS PROPHYLAXIS
  5. CLEXANE [Suspect]
     Active Substance: ENOXAPARIN SODIUM
     Indication: PROPHYLAXIS
     Route: 058
     Dates: start: 201310
  6. PREDSIM [Concomitant]
     Active Substance: PREDNISOLONE
     Indication: IMMUNISATION
     Dosage: TAKEN IN MORNING
     Route: 048
     Dates: start: 2013
  7. CITONEURIN [Concomitant]
     Active Substance: CYANOCOBALAMIN\PYRIDOXINE HYDROCHLORIDE\THIAMINE
     Indication: VITAMIN SUPPLEMENTATION
     Route: 048
     Dates: start: 201307
  8. SOMALGIN [Concomitant]
     Active Substance: ASPIRIN\DIHYDROXYALUMINUM AMINOACETATE ANHYDROUS\MAGNESIUM CARBONATE
     Indication: IMMUNISATION
     Route: 048
     Dates: start: 2013

REACTIONS (5)
  - Placenta praevia [Recovered/Resolved]
  - Haemorrhage [Recovered/Resolved]
  - Exposure during pregnancy [Unknown]
  - Thrombosis [Recovered/Resolved]
  - Placental disorder [Recovered/Resolved]
